FAERS Safety Report 4749708-9 (Version None)
Quarter: 2005Q3

REPORT INFORMATION
  Report Type: 
  Country: None (occurrence: None)
  Receive Date: 20050822
  Receipt Date: 20050511
  Transmission Date: 20060218
  Serious: Yes (Hospitalization)
  Sender: FDA-Public Use
  Company Number: US-MERCK-0505USA01662

PATIENT
  Age: 73 Year
  Sex: Female
  Weight: 58 kg

DRUGS (34)
  1. ZITHROMAX [Concomitant]
     Route: 065
  2. OXYCONTIN [Concomitant]
     Route: 065
  3. NEXIUM [Concomitant]
     Route: 065
  4. PERIOSTAT [Concomitant]
     Route: 065
  5. TOPROL-XL [Concomitant]
     Route: 065
  6. HUMALOG [Concomitant]
     Route: 065
  7. VIOXX [Suspect]
     Indication: OSTEOARTHRITIS
     Route: 048
     Dates: start: 19990101, end: 20041110
  8. COUMADIN [Concomitant]
     Route: 065
  9. LESCOL [Concomitant]
     Route: 065
  10. LANTUS [Concomitant]
     Route: 065
  11. DIOVAN [Concomitant]
     Route: 065
  12. LAMISIL [Concomitant]
     Route: 065
  13. ZOFRAN [Concomitant]
     Route: 065
  14. FUROSEMIDE [Concomitant]
     Route: 065
  15. PROMETHAZINE [Concomitant]
     Route: 065
  16. NITROGLYCERIN [Concomitant]
     Route: 065
  17. CEPHALEXIN [Concomitant]
     Route: 065
  18. BACTROBAN [Concomitant]
     Route: 065
  19. LOVENOX [Concomitant]
     Route: 065
  20. ROXICET [Concomitant]
     Route: 065
  21. CLINDAMYCIN [Concomitant]
     Route: 065
  22. SULFACETAMIDE [Concomitant]
     Route: 065
  23. PREVACID [Concomitant]
     Route: 065
  24. METRONIDAZOLE [Concomitant]
     Route: 065
  25. ZETIA [Concomitant]
     Route: 065
  26. SULFAMETHOXAZOLE [Concomitant]
     Route: 065
  27. METOCLOPRAMIDE [Concomitant]
     Route: 065
  28. ZESTRIL [Concomitant]
     Route: 065
  29. ALPRAZOLAM [Concomitant]
     Route: 065
  30. CLONAZEPAM [Concomitant]
     Route: 065
  31. DESONIDE [Concomitant]
     Route: 065
  32. CELEBREX [Concomitant]
     Route: 065
  33. ALLEGRA [Concomitant]
     Route: 065
  34. ACLOVATE [Concomitant]
     Route: 065

REACTIONS (10)
  - ARTHROPATHY [None]
  - ATHEROSCLEROSIS [None]
  - BLOOD CHOLESTEROL INCREASED [None]
  - CARDIAC VALVE DISEASE [None]
  - CORONARY ARTERY DISEASE [None]
  - DEPRESSION [None]
  - EYE HAEMORRHAGE [None]
  - PAIN [None]
  - POLYTRAUMATISM [None]
  - RETINAL HAEMORRHAGE [None]
